FAERS Safety Report 9568754 (Version 4)
Quarter: 2014Q1

REPORT INFORMATION
  Report Type: Spontaneous
  Country: US (occurrence: US)
  Receive Date: 20130930
  Receipt Date: 20140228
  Transmission Date: 20141002
  Serious: No
  Sender: FDA-Public Use
  Company Number: US-AMGEN-USASP2013058558

PATIENT
  Age: 36 Year
  Sex: Female
  Weight: 62.59 kg

DRUGS (10)
  1. ENBREL [Suspect]
     Indication: RHEUMATOID ARTHRITIS
     Dosage: UNK, QWK
     Route: 058
     Dates: start: 20060509, end: 20060516
  2. AMOXICILLIN [Suspect]
     Indication: PRODUCT USED FOR UNKNOWN INDICATION
     Dosage: UNK
     Route: 065
  3. ORENCIA [Suspect]
     Indication: PRODUCT USED FOR UNKNOWN INDICATION
     Dosage: 125 MG/ML, UNK
     Route: 058
     Dates: start: 20130609
  4. XELJANZ [Concomitant]
     Indication: RHEUMATOID ARTHRITIS
     Dosage: 5 MG, BID
     Route: 048
  5. HUMIRA [Concomitant]
     Dosage: UNK
  6. VITAMIN D                          /00107901/ [Concomitant]
     Dosage: 50000 UNIT, UNK
  7. VITAMIN C                          /00008001/ [Concomitant]
     Dosage: 500 MG, CR, UNK
  8. VITAMIN A                          /00056001/ [Concomitant]
     Dosage: 8000 UNIT, UNK
  9. OMEGA 3                            /01333901/ [Concomitant]
     Dosage: 340 MG, UNK
  10. SIMVASTATIN [Concomitant]
     Dosage: 20 MG, UNK

REACTIONS (6)
  - Drug hypersensitivity [Unknown]
  - Acne [Unknown]
  - Non-cardiac chest pain [Recovered/Resolved]
  - Chest discomfort [Recovered/Resolved]
  - Nausea [Unknown]
  - Malaise [Unknown]
